FAERS Safety Report 20335536 (Version 3)
Quarter: 2022Q2

REPORT INFORMATION
  Report Type: Spontaneous
  Country: FR (occurrence: FR)
  Receive Date: 20220114
  Receipt Date: 20220421
  Transmission Date: 20220721
  Serious: Yes (Hospitalization)
  Sender: FDA-Public Use
  Company Number: None

PATIENT
  Age: 68 Year
  Sex: Male
  Weight: 68 kg

DRUGS (10)
  1. CARBOPLATIN [Suspect]
     Active Substance: CARBOPLATIN
     Indication: Bronchial carcinoma
     Dosage: UNK, (INCONNUE)
     Route: 042
     Dates: start: 202109, end: 202112
  2. CARBOPLATIN [Suspect]
     Active Substance: CARBOPLATIN
     Dosage: 1 DOSAGE FORM, Q3W
     Route: 042
     Dates: start: 20210902, end: 20211112
  3. KEYTRUDA [Suspect]
     Active Substance: PEMBROLIZUMAB
     Indication: Bronchial carcinoma
     Dosage: 1 DOSAGE FORM, Q3W
     Route: 042
     Dates: start: 20210902, end: 20210923
  4. KEYTRUDA [Suspect]
     Active Substance: PEMBROLIZUMAB
     Dosage: UNK  (INCONNUE)
     Route: 042
     Dates: start: 202109, end: 202110
  5. ALIMTA [Suspect]
     Active Substance: PEMETREXED DISODIUM
     Indication: Bronchial carcinoma
     Dosage: UNK (INCONNUE)
     Route: 042
     Dates: start: 202109, end: 202112
  6. ALIMTA [Suspect]
     Active Substance: PEMETREXED DISODIUM
     Dosage: 1 DOSAGE FORM, Q3W
     Route: 042
     Dates: start: 20210902, end: 20211112
  7. COMIRNATY [Suspect]
     Active Substance: TOZINAMERAN
     Indication: COVID-19 immunisation
     Dosage: 1 DOSAGE FORM, TOTAL, (R1)
     Route: 030
     Dates: start: 20211210, end: 20211210
  8. ASTRAZENECA COVID-19 VACCINE [Concomitant]
     Active Substance: AZD-1222
     Indication: COVID-19 immunisation
     Dosage: 1 DOSAGE FORM,Q2 TOTAL, (D1+D2)
     Route: 030
     Dates: start: 20210325, end: 20210617
  9. KARDEGIC [Concomitant]
     Active Substance: ASPIRIN DL-LYSINE
     Dosage: 75 MILLIGRAM, QD, (IN SACHET-DOSE)
     Route: 048
  10. ATORVASTATIN [Concomitant]
     Active Substance: ATORVASTATIN
     Dosage: 20 MILLIGRAM, QD
     Route: 048

REACTIONS (1)
  - Cerebellar syndrome [Not Recovered/Not Resolved]

NARRATIVE: CASE EVENT DATE: 20211213
